FAERS Safety Report 19823604 (Version 1)
Quarter: 2021Q3

REPORT INFORMATION
  Report Type: Spontaneous
  Country: US (occurrence: US)
  Receive Date: 20210913
  Receipt Date: 20210913
  Transmission Date: 20211014
  Serious: Yes (Other)
  Sender: FDA-Public Use
  Company Number: US-PFIZER INC-202101139260

PATIENT
  Age: 61 Year
  Sex: Female
  Weight: 113.38 kg

DRUGS (13)
  1. TRAZODONE [Concomitant]
     Active Substance: TRAZODONE HYDROCHLORIDE
     Dosage: 50 MG
  2. MIRALAX [Concomitant]
     Active Substance: POLYETHYLENE GLYCOL 3350
     Dosage: 17 G
  3. CENTRUM SILVER WOMEN 50+ [Concomitant]
     Active Substance: MINERALS\VITAMINS
     Dosage: UNK
  4. IBRANCE [Suspect]
     Active Substance: PALBOCICLIB
     Indication: BREAST CANCER FEMALE
     Dosage: 125 MG, CYCLIC(1 DIALY FOR 21DAYS)
     Route: 048
     Dates: start: 20210805
  5. POLYETHYLENE GLYCOL COMPOUND [Concomitant]
     Dosage: UNK
  6. LORAZEPAM. [Concomitant]
     Active Substance: LORAZEPAM
     Dosage: 0.5 MG
  7. OXYCODONE HYDROCHLORIDE. [Concomitant]
     Active Substance: OXYCODONE HYDROCHLORIDE
     Dosage: 10 MG
  8. IBRANCE [Suspect]
     Active Substance: PALBOCICLIB
     Dosage: 100 MG, CYCLIC (1 DAILY FOR 21 DAYS)
  9. PYRIDOXINE HCL [Concomitant]
     Active Substance: PYRIDOXINE HYDROCHLORIDE
     Dosage: 25 MG
  10. XGEVA [Concomitant]
     Active Substance: DENOSUMAB
     Dosage: 120 MG(120 MG/1.7 VIAL)
  11. SENNA PLUS [SENNA ALEXANDRINA] [Concomitant]
     Dosage: 50 MG(8.6MG?50MG CAPSULE)
  12. LETROZOLE. [Concomitant]
     Active Substance: LETROZOLE
     Dosage: 2.5 MG
  13. NYSTATIN. [Concomitant]
     Active Substance: NYSTATIN
     Dosage: 100000 ML

REACTIONS (5)
  - Laryngitis [Unknown]
  - Paraesthesia oral [Unknown]
  - Urinary tract infection [Unknown]
  - Oral mucosal exfoliation [Unknown]
  - Back pain [Recovering/Resolving]
